FAERS Safety Report 8021246-X (Version None)
Quarter: 2011Q4

REPORT INFORMATION
  Report Type: 
  Country: None (occurrence: None)
  Receive Date: 20111229
  Receipt Date: 20111215
  Transmission Date: 20120403
  Serious: Yes (Other)
  Sender: FDA-Public Use
  Company Number: GB-2011-3485

PATIENT
  Age: 64 Year
  Sex: Female

DRUGS (7)
  1. NAVELBINE [Suspect]
     Indication: NON-SMALL CELL LUNG CANCER
     Dosage: 45 MG
     Dates: start: 20050912
  2. CISPLATIN [Suspect]
     Indication: NON-SMALL CELL LUNG CANCER
     Dosage: 144 MG
     Dates: start: 20050912
  3. CISPLATIN [Suspect]
     Indication: NON-SMALL CELL LUNG CANCER
     Dosage: 146 MG
     Dates: start: 20050912
  4. NAVELBINE [Suspect]
     Indication: NON-SMALL CELL LUNG CANCER
     Dosage: 45 MG
     Dates: start: 20050912
  5. CISPLATIN [Suspect]
     Indication: NON-SMALL CELL LUNG CANCER
     Dosage: 146 MG
     Dates: start: 20050818
  6. NAVELBINE [Suspect]
     Indication: NON-SMALL CELL LUNG CANCER
     Dosage: 46 MG, IV
     Route: 042
     Dates: start: 20050912
  7. NAVELBINE [Suspect]
     Indication: NON-SMALL CELL LUNG CANCER
     Dosage: 45 MG, IV
     Route: 042
     Dates: start: 20050818

REACTIONS (7)
  - DIARRHOEA [None]
  - HAEMATOTOXICITY [None]
  - INFECTION [None]
  - FEBRILE NEUTROPENIA [None]
  - MUSCLE SPASMS [None]
  - ABDOMINAL PAIN [None]
  - CONFUSIONAL STATE [None]
